FAERS Safety Report 15585461 (Version 1)
Quarter: 2018Q4

REPORT INFORMATION
  Report Type: Report from Study
  Country: DE (occurrence: DE)
  Receive Date: 20181105
  Receipt Date: 20181105
  Transmission Date: 20190205
  Serious: Yes (Hospitalization, Other)
  Sender: FDA-Public Use
  Company Number: DE-BRISTOL-MYERS SQUIBB COMPANY-BMS-2018-074775

PATIENT
  Age: 82 Year
  Sex: Male
  Weight: 74.5 kg

DRUGS (14)
  1. ELUTIT-CALCIUM [Concomitant]
     Indication: HYPOCALCAEMIA
     Dosage: 15 G, PRN
     Route: 048
     Dates: start: 20160921
  2. FINASTERIDE. [Concomitant]
     Active Substance: FINASTERIDE
     Indication: PROSTATIC HYPOPLASIA
     Dosage: 5 MG, QD
     Route: 048
     Dates: start: 20140203
  3. APIXABAN [Suspect]
     Active Substance: APIXABAN
     Indication: CEREBROVASCULAR ACCIDENT PROPHYLAXIS
     Dosage: 2.5 MG, BID
     Route: 048
     Dates: start: 20171009
  4. SIMVASTATIN. [Concomitant]
     Active Substance: SIMVASTATIN
     Indication: HYPOCHOLESTEROLAEMIA
     Dosage: 20 MG, QD
     Route: 048
     Dates: start: 20121107
  5. BISOPROLOL [Concomitant]
     Active Substance: BISOPROLOL
     Indication: HYPERTENSION
     Dosage: 2.5 MG, QD
     Route: 048
     Dates: start: 20121031
  6. PANTOZOL [Concomitant]
     Active Substance: PANTOPRAZOLE SODIUM
     Indication: GASTRITIS PROPHYLAXIS
     Dosage: 40 MG, PRN
     Route: 048
     Dates: start: 20110131
  7. ARANESP [Concomitant]
     Active Substance: DARBEPOETIN ALFA
     Indication: NEPHROGENIC ANAEMIA
     Dosage: 40 ?G, QWK
     Route: 042
     Dates: start: 20170510
  8. DECOSTRIOL [Concomitant]
     Active Substance: CALCITRIOL
     Indication: END STAGE RENAL DISEASE
     Dosage: 0.25 ?G, 3 TIMES/WK
     Route: 048
     Dates: start: 20150225
  9. KEPARIN                            /00027704/ [Concomitant]
     Indication: END STAGE RENAL DISEASE
     Dosage: 6250 ABSENT, 3 TIMES/WK
     Route: 042
     Dates: start: 20101108
  10. TAMSULOSIN [Concomitant]
     Active Substance: TAMSULOSIN
     Indication: PROSTATIC HYPOPLASIA
     Dosage: 0.4 MG, UNK
     Route: 048
     Dates: start: 20140416
  11. FERRLECIT                          /00023541/ [Concomitant]
     Indication: IRON DEFICIENCY
     Dosage: 40 MG, QWK
     Route: 042
     Dates: start: 20180216
  12. TORASEMID [Concomitant]
     Active Substance: TORSEMIDE
     Indication: END STAGE RENAL DISEASE
     Dosage: 150 MG, QD
     Route: 048
     Dates: start: 20140721
  13. NOVALGIN                           /00169801/ [Concomitant]
     Active Substance: ACETAMINOPHEN\CAFFEINE\PROPYPHENAZONE
     Indication: PAIN PROPHYLAXIS
     Dosage: 750 MG, PRN
     Route: 048
     Dates: start: 20160316
  14. DREISAVIT                          /00844801/ [Concomitant]
     Indication: HYPOVITAMINOSIS
     Dosage: 211.58 MG, QD
     Route: 048
     Dates: start: 20180404

REACTIONS (4)
  - Haematochezia [Unknown]
  - Haemoglobin decreased [Unknown]
  - Haematuria [Not Recovered/Not Resolved]
  - Gastrooesophageal reflux disease [Unknown]

NARRATIVE: CASE EVENT DATE: 20180808
